FAERS Safety Report 7821195-3 (Version None)
Quarter: 2011Q4

REPORT INFORMATION
  Report Type: 
  Country: None (occurrence: None)
  Receive Date: 20111018
  Receipt Date: 20111012
  Transmission Date: 20120403
  Serious: Yes (Other)
  Sender: FDA-Public Use
  Company Number: US-PFIZER INC-2011244113

PATIENT
  Sex: Male
  Weight: 63.492 kg

DRUGS (4)
  1. LYRICA [Suspect]
     Indication: SCOLIOSIS
     Dosage: 300 MG, 2X/DAY
     Dates: start: 20100101
  2. LYRICA [Suspect]
     Indication: INTERVERTEBRAL DISC DEGENERATION
     Dosage: UNK 2X/DAY
     Route: 048
     Dates: start: 20100101, end: 20100101
  3. CYMBALTA [Concomitant]
     Dosage: 20 MG, 2X/DAY
  4. OMEPRAZOLE [Concomitant]
     Indication: ABDOMINAL DISCOMFORT
     Dosage: 40MG

REACTIONS (3)
  - INSOMNIA [None]
  - INFLUENZA LIKE ILLNESS [None]
  - WITHDRAWAL SYNDROME [None]
